FAERS Safety Report 21964225 (Version 1)
Quarter: 2023Q1

REPORT INFORMATION
  Report Type: Report from Study
  Country: ES (occurrence: ES)
  Receive Date: 20230207
  Receipt Date: 20230207
  Transmission Date: 20230418
  Serious: Yes (Other)
  Sender: FDA-Public Use
  Company Number: ES-JNJFOC-20230154535

PATIENT
  Age: 75 Year
  Sex: Male

DRUGS (2)
  1. BORTEZOMIB [Suspect]
     Active Substance: BORTEZOMIB
     Indication: Plasma cell myeloma
     Dosage: 1.3 MILLIGRAM/SQ. METER
     Route: 058
  2. DARATUMUMAB [Suspect]
     Active Substance: DARATUMUMAB
     Indication: Plasma cell myeloma
     Dosage: 16 MILLIGRAM/SQ. METER, 1/WEEK
     Route: 041
     Dates: start: 20200901

REACTIONS (1)
  - Loss of therapeutic response [Not Recovered/Not Resolved]

NARRATIVE: CASE EVENT DATE: 20201005
